FAERS Safety Report 7213319-6 (Version None)
Quarter: 2010Q4

REPORT INFORMATION
  Report Type: 
  Country: None (occurrence: None)
  Receive Date: 20101126
  Receipt Date: 20100319
  Transmission Date: 20110411
  Serious: Yes (Disabling)
  Sender: FDA-Public Use
  Company Number: WAES 0704USA05890

PATIENT
  Age: 56 Year
  Sex: Female

DRUGS (3)
  1. FOSAMAX [Suspect]
     Indication: OSTEOPENIA
     Dosage: 70 MG/PO
     Route: 048
     Dates: start: 20050502, end: 20051101
  2. FOSAMAX PLUS D [Suspect]
     Indication: OSTEOPENIA
     Dosage: 70/2800 (UNIT)/PO
     Route: 048
     Dates: start: 20051201, end: 20060601
  3. ALBUTEROL [Concomitant]

REACTIONS (10)
  - ANXIETY [None]
  - BACK PAIN [None]
  - CERVICAL DYSPLASIA [None]
  - DEPRESSION [None]
  - DYSPNOEA [None]
  - ORAL INFECTION [None]
  - OSTEONECROSIS [None]
  - OSTEOPOROSIS [None]
  - RECTAL HAEMORRHAGE [None]
  - RENAL MASS [None]
